FAERS Safety Report 4940451-X (Version None)
Quarter: 2006Q1

REPORT INFORMATION
  Report Type: 
  Country: None (occurrence: None)
  Receive Date: 20060131
  Receipt Date: 20051010
  Transmission Date: 20060701
  Serious: No
  Sender: FDA-Public Use
  Company Number: 200519238US

PATIENT
  Age: 34 Year
  Sex: Female

DRUGS (3)
  1. KETEK [Suspect]
     Indication: PHARYNGOLARYNGEAL PAIN
     Dosage: 800 MG QD PO
     Route: 048
     Dates: start: 20050901, end: 20050901
  2. ZOLOFT [Concomitant]
  3. XANAX [Concomitant]

REACTIONS (1)
  - DYSGEUSIA [None]
